FAERS Safety Report 26120166 (Version 1)
Quarter: 2025Q4

REPORT INFORMATION
  Report Type: Spontaneous
  Country: GB (occurrence: GB)
  Receive Date: 20251204
  Receipt Date: 20251204
  Transmission Date: 20260118
  Serious: Yes (Hospitalization, Other)
  Sender: CADILA
  Company Number: GB-CPL-005971

PATIENT
  Age: 36 Year
  Sex: Male

DRUGS (12)
  1. PREGABALIN [Suspect]
     Active Substance: PREGABALIN
     Indication: Neuralgia
     Dosage: 75 MG TWICE DAILY
  2. ZUCLOPENTHIXOL DECANOATE [Suspect]
     Active Substance: ZUCLOPENTHIXOL DECANOATE
     Indication: Neuralgia
     Dosage: 500 MG WEEKLY
  3. CLONAZEPAM [Concomitant]
     Active Substance: CLONAZEPAM
     Dosage: 3 TIMES DAILY
  4. CHOLECALCIFEROL [Concomitant]
     Active Substance: CHOLECALCIFEROL
     Dosage: 800 UNITS DAILY
  5. CYANOCOBALAMIN [Concomitant]
     Active Substance: CYANOCOBALAMIN
  6. LORATADINE [Concomitant]
     Active Substance: LORATADINE
  7. BISOPROLOL FUMARATE [Concomitant]
     Active Substance: BISOPROLOL FUMARATE
  8. ACETAMINOPHEN [Concomitant]
     Active Substance: ACETAMINOPHEN
     Dosage: 1 G UP TO FOUR TIMES DAILY WHEN REQUIRED
  9. IBUPROFEN [Concomitant]
     Active Substance: IBUPROFEN
     Dosage: UP TO THREE TIMES DAILY WHEN REQUIRED
  10. CODEINE PHOSPHATE [Concomitant]
     Active Substance: CODEINE PHOSPHATE
     Dosage: 30 MG UP TO FOUR TIMES DAILY WHEN REQUIRED
  11. NICOTINE [Concomitant]
     Active Substance: NICOTINE
     Dosage: INHALATOR AND LOZENGE WHEN REQUIRED
  12. LORAZEPAM [Concomitant]
     Active Substance: LORAZEPAM
     Dosage: WHEN REQUIRED MAXIMUM 2 MG/24 HRS

REACTIONS (2)
  - Priapism [Recovered/Resolved]
  - Drug interaction [Unknown]
